FAERS Safety Report 6463919-6 (Version None)
Quarter: 2009Q4

REPORT INFORMATION
  Report Type: 
  Country: None (occurrence: None)
  Receive Date: 20091201
  Receipt Date: 20091118
  Transmission Date: 20100525
  Serious: Yes (Other)
  Sender: FDA-Public Use
  Company Number: US-JNJFOC-20091106125

PATIENT
  Sex: Female
  Weight: 99.79 kg

DRUGS (6)
  1. DURAGESIC-100 [Suspect]
     Indication: PAIN
     Route: 062
     Dates: start: 20010101, end: 20091101
  2. DURAGESIC-100 [Suspect]
     Route: 062
  3. PERCOCET [Suspect]
     Indication: PAIN
     Route: 048
  4. INSULIN [Concomitant]
     Indication: BLOOD GLUCOSE ABNORMAL
     Route: 058
  5. PERCOCET [Concomitant]
     Route: 048
  6. LEVOTHYROXINE SODIUM [Concomitant]
     Indication: THYROID DISORDER
     Route: 048

REACTIONS (7)
  - HYPERTENSION [None]
  - INADEQUATE ANALGESIA [None]
  - OEDEMA PERIPHERAL [None]
  - PAIN [None]
  - STRESS [None]
  - URINARY TRACT INFECTION [None]
  - WRONG TECHNIQUE IN DRUG USAGE PROCESS [None]
